FAERS Safety Report 18573460 (Version 1)
Quarter: 2020Q4

REPORT INFORMATION
  Report Type: Spontaneous
  Country: US (occurrence: US)
  Receive Date: 20201203
  Receipt Date: 20201203
  Transmission Date: 20210114
  Serious: Yes (Other)
  Sender: FDA-Public Use
  Company Number: US-AUROBINDO-AUR-APL-2020-058836

PATIENT
  Age: 15 Year
  Sex: Male

DRUGS (2)
  1. DIVALPROEX [Suspect]
     Active Substance: DIVALPROEX SODIUM
     Indication: MANIA
     Dosage: 125 MILLIGRAM, (BY MOUTH DURING THE DAY)
     Route: 048
  2. DIVALPROEX [Suspect]
     Active Substance: DIVALPROEX SODIUM
     Indication: BIPOLAR DISORDER
     Dosage: 375 MILLIGRAM, (BY MOUTH AT BEDTIME)
     Route: 048

REACTIONS (2)
  - Hyperammonaemia [Unknown]
  - Abnormal behaviour [Recovered/Resolved]
